FAERS Safety Report 12307942 (Version 1)
Quarter: 2016Q2

REPORT INFORMATION
  Report Type: Spontaneous
  Country: US (occurrence: US)
  Receive Date: 20160426
  Receipt Date: 20160426
  Transmission Date: 20160815
  Serious: No
  Sender: FDA-Public Use
  Company Number: US-ALKERMES INC.-ALK-2016-000423

PATIENT

DRUGS (1)
  1. VIVITROL [Suspect]
     Active Substance: NALTREXONE
     Indication: ALCOHOLISM
     Dosage: 380 MG, QMO
     Route: 030
     Dates: start: 20160205

REACTIONS (7)
  - Nervousness [Recovered/Resolved]
  - Glassy eyes [Unknown]
  - Paranoia [Recovered/Resolved]
  - Somnolence [Recovered/Resolved]
  - Fear [Recovered/Resolved]
  - Alcohol use [Not Recovered/Not Resolved]
  - Euphoric mood [Recovered/Resolved]

NARRATIVE: CASE EVENT DATE: 201602
